FAERS Safety Report 11505013 (Version 1)
Quarter: 2015Q3

REPORT INFORMATION
  Report Type: Spontaneous
  Country: US (occurrence: None)
  Receive Date: 20150914
  Receipt Date: 20150914
  Transmission Date: 20151125
  Serious: Yes (Hospitalization)
  Sender: FDA-Public Use
  Company Number: None

PATIENT
  Age: 69 Year
  Sex: Male
  Weight: 105.5 kg

DRUGS (1)
  1. APIXABAN [Suspect]
     Active Substance: APIXABAN
     Indication: ATRIAL FIBRILLATION
     Route: 048
     Dates: start: 20140918, end: 20150325

REACTIONS (5)
  - Clostridium difficile infection [None]
  - Gastrointestinal haemorrhage [None]
  - Chronic obstructive pulmonary disease [None]
  - Cardiac failure congestive [None]
  - Haematochezia [None]

NARRATIVE: CASE EVENT DATE: 20150325
